APPROVED DRUG PRODUCT: SPRIX
Active Ingredient: KETOROLAC TROMETHAMINE
Strength: 15.75MG/SPRAY
Dosage Form/Route: SPRAY, METERED;NASAL
Application: N022382 | Product #001
Applicant: ZYLA LIFE SCIENCES US INC
Approved: May 14, 2010 | RLD: Yes | RS: Yes | Type: RX